FAERS Safety Report 7259238-0 (Version None)
Quarter: 2011Q1

REPORT INFORMATION
  Report Type: 
  Country: None (occurrence: None)
  Receive Date: 20110129
  Receipt Date: 20100811
  Transmission Date: 20110831
  Serious: No
  Sender: FDA-Public Use
  Company Number: US-ABBOTT-10P-163-0663902-00

PATIENT
  Sex: Female
  Weight: 46.308 kg

DRUGS (2)
  1. METHOTREXATE [Concomitant]
     Indication: PRODUCT USED FOR UNKNOWN INDICATION
  2. HUMIRA [Suspect]
     Indication: RHEUMATOID ARTHRITIS
     Route: 058
     Dates: start: 20090901

REACTIONS (5)
  - JOINT SWELLING [None]
  - SKIN DISCOLOURATION [None]
  - INFLAMMATION [None]
  - DRUG INEFFECTIVE [None]
  - ARTHRALGIA [None]
